FAERS Safety Report 15564766 (Version 1)
Quarter: 2018Q4

REPORT INFORMATION
  Report Type: Spontaneous
  Country: US (occurrence: US)
  Receive Date: 20181029
  Receipt Date: 20181029
  Transmission Date: 20190205
  Serious: Yes (Other)
  Sender: FDA-Public Use
  Company Number: None

PATIENT
  Age: 19 Year
  Sex: Female

DRUGS (1)
  1. AIMOVIG [Suspect]
     Active Substance: ERENUMAB-AOOE
     Indication: MIGRAINE
     Dosage: ?          QUANTITY:1 INJECTION(S);?
     Route: 030
     Dates: start: 20181016, end: 20181016

REACTIONS (7)
  - Headache [None]
  - Photophobia [None]
  - Condition aggravated [None]
  - Feeling abnormal [None]
  - Paraesthesia [None]
  - Vision blurred [None]
  - Hyperacusis [None]

NARRATIVE: CASE EVENT DATE: 20181022
